FAERS Safety Report 9504788 (Version 1)
Quarter: 2013Q1

REPORT INFORMATION
  Report Type: Spontaneous
  Country: US (occurrence: None)
  Receive Date: 20130225
  Receipt Date: 20130225
  Transmission Date: 20140127
  Serious: Yes (Hospitalization)
  Sender: FDA-Public Use
  Company Number: 2011-031

PATIENT
  Age: 49 Year
  Sex: Female

DRUGS (4)
  1. PRIALT (ZICONOTIDE) INTRATHECAL INFUSION [Suspect]
     Indication: PANCREATITIS
     Route: 037
     Dates: end: 201101
  2. CLONIDINE (CLONIDINE) INJECTION [Suspect]
     Indication: PANCREATITIS
     Dates: end: 201101
  3. DILAUDID (HYDROMORPHONE HYDROCHLORIDE) INJECTION [Suspect]
     Indication: PANCREATITIS
     Route: 037
     Dates: end: 201101
  4. FENTANYL (FENTANYL) INJECTION [Suspect]
     Indication: PANCREATITIS
     Route: 037

REACTIONS (4)
  - Overdose [None]
  - Loss of consciousness [None]
  - Muscle spasms [None]
  - Drug withdrawal syndrome [None]
